FAERS Safety Report 19095925 (Version 1)
Quarter: 2021Q2

REPORT INFORMATION
  Report Type: Other
  Country: US (occurrence: US)
  Receive Date: 20210406
  Receipt Date: 20210406
  Transmission Date: 20210717
  Serious: Yes (Hospitalization)
  Sender: FDA-Public Use
  Company Number: US-ROCHE-2797744

PATIENT
  Sex: Male

DRUGS (1)
  1. OCREVUS [Suspect]
     Active Substance: OCRELIZUMAB
     Indication: MULTIPLE SCLEROSIS
     Dosage: DATE OF TREATMENT: 13/JUL/2020, 01/FEB/2021?PRESCRIBED WITH INFUSE 300MG DAY 0 AND DAY 15; INFUSE 60
     Route: 065
     Dates: start: 20191230

REACTIONS (1)
  - COVID-19 [Not Recovered/Not Resolved]
